FAERS Safety Report 10151962 (Version 1)
Quarter: 2014Q2

REPORT INFORMATION
  Report Type: Spontaneous
  Country: US (occurrence: US)
  Receive Date: 20140505
  Receipt Date: 20140505
  Transmission Date: 20141212
  Serious: Yes (Other)
  Sender: FDA-Public Use
  Company Number: US-ELI_LILLY_AND_COMPANY-US201404008943

PATIENT
  Sex: Female

DRUGS (4)
  1. HUMALOG LISPRO [Suspect]
     Indication: TYPE 1 DIABETES MELLITUS
     Dosage: 26 U, EACH MORNING
     Route: 065
     Dates: start: 201401
  2. HUMALOG LISPRO [Suspect]
     Dosage: 28 U, QD
     Route: 065
     Dates: start: 201401
  3. HUMALOG LISPRO [Suspect]
     Dosage: 30 U, EACH EVENING
     Route: 065
     Dates: start: 201401
  4. LANTUS [Concomitant]
     Dosage: UNK, EACH EVENING

REACTIONS (3)
  - Hyperglycaemic unconsciousness [Recovering/Resolving]
  - Dizziness [Not Recovered/Not Resolved]
  - Drug dose omission [Recovered/Resolved]
